FAERS Safety Report 12071141 (Version 1)
Quarter: 2016Q1

REPORT INFORMATION
  Report Type: Spontaneous
  Country: BR (occurrence: BR)
  Receive Date: 20160211
  Receipt Date: 20160211
  Transmission Date: 20160526
  Serious: Yes (Other)
  Sender: FDA-Public Use
  Company Number: BR-ABBVIE-16P-020-1558264-00

PATIENT
  Age: 36 Year
  Sex: Female
  Weight: 66 kg

DRUGS (6)
  1. SYNTHROID [Suspect]
     Active Substance: LEVOTHYROXINE SODIUM
     Indication: HYPOTHYROIDISM
     Route: 048
     Dates: start: 200804
  2. REPELEX [Suspect]
     Active Substance: DIETHYLTOLUAMIDE
     Indication: INFECTION PROPHYLAXIS
     Route: 065
  3. QUETROS [Concomitant]
     Active Substance: QUETIAPINE
     Indication: SLEEP DISORDER THERAPY
  4. DAFORIN [Concomitant]
     Active Substance: FLUOXETINE HYDROCHLORIDE
     Indication: ANTIDEPRESSANT THERAPY
     Dosage: DAILY DOSE : 20 MG IN THE MORNING
     Route: 048
  5. QUETROS [Concomitant]
     Active Substance: QUETIAPINE
     Indication: RELAXATION THERAPY
     Dosage: DAILY DOSE : 100 MG AT NIGHT
     Route: 048
  6. NOEX [Concomitant]
     Active Substance: BUDESONIDE
     Indication: RHINITIS ALLERGIC
     Dosage: USES THIS PRODUCT WHEN PRESENTS RHINITIS CRISIS, ONE PUFF EACH NOSTRIL
     Route: 045

REACTIONS (2)
  - Dengue fever [Recovered/Resolved]
  - Asphyxia [Unknown]

NARRATIVE: CASE EVENT DATE: 2010
